FAERS Safety Report 14292736 (Version 2)
Quarter: 2018Q1

REPORT INFORMATION
  Report Type: Report from Study
  Country: JP (occurrence: JP)
  Receive Date: 20171215
  Receipt Date: 20180122
  Transmission Date: 20180509
  Serious: Yes (Death)
  Sender: FDA-Public Use
  Company Number: JP-JT-EVA201703276KERYXP-001

PATIENT
  Age: 83 Year
  Sex: Female
  Weight: 48 kg

DRUGS (14)
  1. DOXAZOSIN MESILATE [Concomitant]
     Active Substance: DOXAZOSIN MESYLATE
     Dosage: 1 MG, QD
     Route: 048
     Dates: start: 20160107
  2. RIONA [Suspect]
     Active Substance: FERRIC CITRATE ANHYDROUS
     Indication: HYPERPHOSPHATAEMIA
     Dosage: 750 MG, QD
     Route: 048
     Dates: start: 20160728, end: 20170215
  3. AZILVA [Concomitant]
     Active Substance: AZILSARTAN KAMEDOXOMIL
     Dosage: 20 MG, QD
     Route: 048
     Dates: start: 20150219
  4. SPHERICAL CARBON ADSORBENT [Concomitant]
     Indication: DIABETIC NEPHROPATHY
     Dosage: 6000 MG, QD
     Route: 048
     Dates: start: 20161105
  5. MIRCERA [Concomitant]
     Active Substance: METHOXY POLYETHYLENE GLYCOL-EPOETIN BETA
     Dosage: 100 MICRO-G, UNK
     Route: 065
  6. ADALAT [Concomitant]
     Active Substance: NIFEDIPINE
     Dosage: 80 MG, QD
     Route: 048
     Dates: start: 20151105
  7. MIRCERA [Concomitant]
     Active Substance: METHOXY POLYETHYLENE GLYCOL-EPOETIN BETA
     Dosage: 100 MICRO-G, UNK
     Route: 065
  8. SODIUM BICARBONATE. [Concomitant]
     Active Substance: SODIUM BICARBONATE
     Indication: DIABETIC NEPHROPATHY
     Dosage: 1 G, QD
     Route: 048
     Dates: start: 20160330
  9. LANSOPRAZOLE. [Concomitant]
     Active Substance: LANSOPRAZOLE
     Indication: HYPERCHLORHYDRIA
     Dosage: 15 MG, QD
     Route: 048
     Dates: start: 20160407
  10. CALBLOCK [Concomitant]
     Active Substance: AZELNIDIPINE
     Dosage: 16 MG, QD
     Route: 048
     Dates: start: 20130926
  11. FEBURIC [Concomitant]
     Active Substance: FEBUXOSTAT
     Dosage: 20 MG, QD
     Route: 048
     Dates: start: 20140707
  12. TANKARU [Concomitant]
     Indication: HYPERPHOSPHATAEMIA
     Dosage: 3000 MG, QD
     Route: 048
     Dates: start: 20160713
  13. MIRCERA [Concomitant]
     Active Substance: METHOXY POLYETHYLENE GLYCOL-EPOETIN BETA
     Indication: NEPHROGENIC ANAEMIA
     Dosage: 100 MICRO-G, UNK
     Route: 065
  14. MIRCERA [Concomitant]
     Active Substance: METHOXY POLYETHYLENE GLYCOL-EPOETIN BETA
     Dosage: 75 MICRO-G, UNK
     Route: 065

REACTIONS (2)
  - Cardiac failure [Fatal]
  - Influenza [Fatal]

NARRATIVE: CASE EVENT DATE: 20170215
